FAERS Safety Report 4708038-1 (Version None)
Quarter: 2005Q3

REPORT INFORMATION
  Report Type: 
  Country: None (occurrence: None)
  Receive Date: 20050707
  Receipt Date: 20050623
  Transmission Date: 20060218
  Serious: Yes (Hospitalization)
  Sender: FDA-Public Use
  Company Number: DE-JNJFOC-20050503924

PATIENT
  Sex: Female
  Weight: 86 kg

DRUGS (3)
  1. TOPIRAMATE [Suspect]
     Indication: MIGRAINE PROPHYLAXIS
     Route: 049
  2. AMITRIPTYLIN [Concomitant]
     Indication: DEPRESSION
     Route: 049
  3. DOLORMIN [Concomitant]
     Indication: MIGRAINE
     Dosage: TAKEN ^FOR YEARS^
     Route: 049

REACTIONS (1)
  - SYNCOPE [None]
